FAERS Safety Report 20157622 (Version 1)
Quarter: 2021Q4

REPORT INFORMATION
  Report Type: Spontaneous
  Country: NP (occurrence: NP)
  Receive Date: 20211207
  Receipt Date: 20211207
  Transmission Date: 20220303
  Serious: Yes (Death)
  Sender: FDA-Public Use
  Company Number: NP-PFIZER INC-202101649512

PATIENT
  Age: 56 Year
  Sex: Male

DRUGS (1)
  1. TORISEL [Suspect]
     Active Substance: TEMSIROLIMUS
     Indication: Renal cell carcinoma
     Dosage: 25MG (1 X 25MG VIAL)

REACTIONS (3)
  - Anaemia [Fatal]
  - Pancytopenia [Fatal]
  - Cardio-respiratory arrest [Fatal]
